FAERS Safety Report 4307193-5 (Version None)
Quarter: 2004Q1

REPORT INFORMATION
  Report Type: 
  Country: None (occurrence: None)
  Receive Date: 20040225
  Receipt Date: 20040216
  Transmission Date: 20041129
  Serious: Yes (Hospitalization)
  Sender: FDA-Public Use
  Company Number: NO-JNJFOC-20040203188

PATIENT
  Age: 47 Year
  Sex: Male

DRUGS (3)
  1. REMICADE [Suspect]
     Indication: ANKYLOSING SPONDYLITIS
     Dosage: 200MG INCREASED TO 300MG
     Dates: start: 20021001, end: 20040201
  2. CELECOXIB (CELECOXIB) [Concomitant]
  3. METHOTREXATE [Concomitant]

REACTIONS (3)
  - HYPOAESTHESIA [None]
  - MOTOR DYSFUNCTION [None]
  - NEUROPATHY PERIPHERAL [None]
